FAERS Safety Report 7397430-5 (Version None)
Quarter: 2011Q2

REPORT INFORMATION
  Report Type: 
  Country: None (occurrence: None)
  Receive Date: 20110406
  Receipt Date: 20091016
  Transmission Date: 20111010
  Serious: Yes (Hospitalization, Other)
  Sender: FDA-Public Use
  Company Number: US-BAYER-200937843NA

PATIENT
  Sex: Male
  Weight: 96.78 kg

DRUGS (21)
  1. TRASYLOL [Suspect]
     Indication: CORONARY ARTERY BYPASS
     Dosage: 200 ML, UNK
     Route: 042
     Dates: start: 20041103, end: 20041103
  2. ANCEF [Concomitant]
     Dosage: 2 G, UNK
     Route: 042
     Dates: start: 20041103
  3. GELFOAM [Concomitant]
     Dosage: 1 G, UNK
     Route: 042
     Dates: start: 20041103
  4. CONTRAST MEDIA [Concomitant]
     Indication: CATHETERISATION CARDIAC
     Dosage: UNK
     Dates: start: 20041102
  5. LIPITOR [Concomitant]
     Dosage: 20 MG, UNK
     Route: 048
  6. NORVASC [Concomitant]
     Dosage: 10 MG, UNK
     Route: 048
     Dates: start: 20040914
  7. PROTAMINE SULFATE [Concomitant]
     Dosage: 500 MG, UNK
     Route: 042
     Dates: start: 20041103
  8. MANNITOL [Concomitant]
     Dosage: 12.5 G, UNK
     Route: 042
     Dates: start: 20041103
  9. TRASYLOL [Suspect]
     Indication: AORTIC VALVE REPLACEMENT
     Dosage: 200 ML PUMP PRIME
  10. LISINOPRIL [Concomitant]
     Dosage: 40 MG, UNK
     Route: 048
     Dates: start: 20040722
  11. CLONIDINE [Concomitant]
     Dosage: 0.1 MG, UNK
     Route: 048
     Dates: start: 20040818
  12. HEPARIN [Concomitant]
     Dosage: 10000 U, UNK
     Route: 042
     Dates: start: 20041103
  13. VECURONIUM BROMIDE [Concomitant]
     Dosage: UNK
     Route: 042
     Dates: start: 20041103
  14. THROMBIN LOCAL SOLUTION [Concomitant]
     Dosage: 5000 U, UNK
     Route: 042
     Dates: start: 20041103
  15. ACETYLSALICYLIC ACID SRT [Concomitant]
     Dosage: 81 MG, QD
     Route: 048
  16. DILTIAZEM HCL [Concomitant]
     Dosage: 180 MG, UNK
     Route: 048
     Dates: start: 20040722
  17. VERSED [Concomitant]
     Dosage: 3 MG, UNK
     Route: 042
     Dates: start: 20041103
  18. SUFENTANIL [Concomitant]
     Dosage: 110 MG, UNK
     Route: 042
     Dates: start: 20041103
  19. HYDROCHLOROTHIAZIDE [Concomitant]
     Dosage: 25 MG, UNK
     Route: 048
     Dates: start: 20040914
  20. BENADRYL [Concomitant]
     Dosage: 50 MG, UNK
     Route: 042
     Dates: start: 20041103
  21. TRIAMTERENE [Concomitant]
     Dosage: 37.5 MG, UNK
     Route: 048
     Dates: start: 20040914

REACTIONS (13)
  - ANHEDONIA [None]
  - CEREBROVASCULAR ACCIDENT [None]
  - STRESS [None]
  - FEAR [None]
  - INJURY [None]
  - ANXIETY [None]
  - MULTI-ORGAN FAILURE [None]
  - UNEVALUABLE EVENT [None]
  - RENAL INJURY [None]
  - PAIN [None]
  - RENAL FAILURE [None]
  - RENAL IMPAIRMENT [None]
  - EMOTIONAL DISTRESS [None]
